FAERS Safety Report 16500864 (Version 1)
Quarter: 2019Q3

REPORT INFORMATION
  Report Type: Report from Study
  Country: IT (occurrence: IT)
  Receive Date: 20190701
  Receipt Date: 20190701
  Transmission Date: 20191004
  Serious: Yes (Other)
  Sender: FDA-Public Use
  Company Number: IT-PFIZER INC-2019274701

PATIENT
  Age: 52 Year
  Sex: Female

DRUGS (2)
  1. LYRICA [Suspect]
     Active Substance: PREGABALIN
     Dosage: 3 DF, TOTAL
     Route: 048
     Dates: start: 20190521, end: 20190521
  2. ARCOXIA [Suspect]
     Active Substance: ETORICOXIB
     Dosage: 4 DF, TOTAL
     Route: 048
     Dates: start: 20190521, end: 20190521

REACTIONS (2)
  - Malaise [Recovering/Resolving]
  - Drug abuse [Recovering/Resolving]

NARRATIVE: CASE EVENT DATE: 20190521
